FAERS Safety Report 19035521 (Version 1)
Quarter: 2021Q1

REPORT INFORMATION
  Report Type: Spontaneous
  Country: US (occurrence: US)
  Receive Date: 20210320
  Receipt Date: 20210320
  Transmission Date: 20210420
  Serious: Yes (Other)
  Sender: FDA-Public Use
  Company Number: NVSC2021US059210

PATIENT
  Sex: Female

DRUGS (4)
  1. IBRANCE [Suspect]
     Active Substance: PALBOCICLIB
     Dosage: 75 MG, QD (21 DAYS ON/ 7 DAYS OFF)
     Route: 048
     Dates: start: 202101
  2. ZOMETA [Suspect]
     Active Substance: ZOLEDRONIC ACID
     Indication: PRODUCT USED FOR UNKNOWN INDICATION
     Dosage: UNK
     Route: 065
  3. IBRANCE [Suspect]
     Active Substance: PALBOCICLIB
     Indication: BREAST CANCER
     Dosage: 125 MG
     Route: 065
     Dates: start: 20200403
  4. IBRANCE [Suspect]
     Active Substance: PALBOCICLIB
     Dosage: 100 MG
     Route: 065
     Dates: start: 20200507

REACTIONS (9)
  - Fatigue [Unknown]
  - Feeding disorder [Unknown]
  - Rash [Unknown]
  - Stomatitis [Unknown]
  - Vomiting [Unknown]
  - Dizziness [Unknown]
  - Drug ineffective [Unknown]
  - Tumour pain [Unknown]
  - Nausea [Unknown]
